FAERS Safety Report 18695399 (Version 1)
Quarter: 2021Q1

REPORT INFORMATION
  Report Type: Spontaneous
  Country: US (occurrence: US)
  Receive Date: 20210104
  Receipt Date: 20210104
  Transmission Date: 20210419
  Serious: Yes (Other)
  Sender: FDA-Public Use
  Company Number: US-HQ SPECIALTY-US-2020INT000156

PATIENT
  Age: 3 Year
  Sex: Male

DRUGS (6)
  1. DEXMEDETOMIDINE HYDROCHLORIDE. [Suspect]
     Active Substance: DEXMEDETOMIDINE HYDROCHLORIDE
     Indication: PRODUCT USED FOR UNKNOWN INDICATION
     Dosage: 4 ?G, UNK
     Route: 065
  2. OXYGEN. [Concomitant]
     Active Substance: OXYGEN
     Indication: PRODUCT USED FOR UNKNOWN INDICATION
     Dosage: MASK INDUCTION
     Route: 055
  3. SEVOFLURANE. [Concomitant]
     Active Substance: SEVOFLURANE
     Indication: PRODUCT USED FOR UNKNOWN INDICATION
     Dosage: MASK INDUCTION
     Route: 055
  4. GLYCOPYRROLATE                     /00196201/ [Suspect]
     Active Substance: GLYCOPYRRONIUM
     Indication: BRADYCARDIA
     Dosage: STRENGTH: 0.1 MG
     Route: 065
  5. PROPOFOL. [Concomitant]
     Active Substance: PROPOFOL
     Indication: LARYNGEAL MASK AIRWAY INSERTION
     Dosage: 70 MG, UNK
     Route: 065
  6. NITROUS [Concomitant]
     Active Substance: NITROUS OXIDE
     Indication: PRODUCT USED FOR UNKNOWN INDICATION
     Dosage: MASK INDUCTION
     Route: 054

REACTIONS (4)
  - Bradycardia [Recovered/Resolved]
  - Hypertension [Unknown]
  - Tachycardia [Recovered/Resolved]
  - Product administered to patient of inappropriate age [Unknown]
